FAERS Safety Report 15173265 (Version 7)
Quarter: 2022Q4

REPORT INFORMATION
  Report Type: Spontaneous
  Country: PL (occurrence: PL)
  Receive Date: 20180720
  Receipt Date: 20221213
  Transmission Date: 20230113
  Serious: Yes (Hospitalization, Other)
  Sender: FDA-Public Use
  Company Number: PL-VITABALANS-009-2018

PATIENT
  Age: 17 Year
  Sex: Female

DRUGS (17)
  1. KETOPROFEN [Interacting]
     Active Substance: KETOPROFEN
     Indication: Back pain
     Dosage: UNK
     Route: 065
  2. KETOPROFEN [Interacting]
     Active Substance: KETOPROFEN
     Indication: Pain
     Dosage: 100 MG, BID
     Route: 065
  3. KETOPROFEN [Interacting]
     Active Substance: KETOPROFEN
     Indication: Injury
  4. KETOPROFEN [Interacting]
     Active Substance: KETOPROFEN
     Indication: Ilium fracture
  5. DICLOFENAC [Interacting]
     Active Substance: DICLOFENAC
     Indication: Pain
     Dosage: 50 MG, UNK, X 1-2 A DAY
     Route: 065
  6. DICLOFENAC [Interacting]
     Active Substance: DICLOFENAC
     Indication: Back pain
     Dosage: 100 MG, QD, 50 MG BID
     Route: 065
  7. DICLOFENAC [Interacting]
     Active Substance: DICLOFENAC
     Indication: Ilium fracture
     Dosage: 50 MILLIGRAM, PRN,
     Route: 065
  8. DICLOFENAC [Interacting]
     Active Substance: DICLOFENAC
     Indication: Injury
     Dosage: 50 MILLIGRAM, QD
     Route: 065
  9. DICLOFENAC [Interacting]
     Active Substance: DICLOFENAC
     Dosage: 200 MILLIGRAM, QD, 100 MG, BID
     Route: 065
  10. ACETAMINOPHEN [Interacting]
     Active Substance: ACETAMINOPHEN
     Indication: Ilium fracture
     Dosage: 500 MG X 3 A DAY
     Route: 048
  11. ACETAMINOPHEN [Interacting]
     Active Substance: ACETAMINOPHEN
     Indication: Injury
     Dosage: 1500 MILLIGRAM, QD, 500 MG TID
     Route: 048
  12. ACETAMINOPHEN [Interacting]
     Active Substance: ACETAMINOPHEN
     Indication: Pain
  13. ACETAMINOPHEN [Interacting]
     Active Substance: ACETAMINOPHEN
     Indication: Back pain
  14. KETOPROFEN [Suspect]
     Active Substance: KETOPROFEN
     Indication: Ilium fracture
     Dosage: 100 MG X 2 A DAY
     Route: 065
  15. KETOPROFEN [Suspect]
     Active Substance: KETOPROFEN
     Indication: Pain
  16. KETOPROFEN [Suspect]
     Active Substance: KETOPROFEN
     Indication: Back pain
  17. KETOPROFEN [Suspect]
     Active Substance: KETOPROFEN
     Indication: Injury

REACTIONS (24)
  - Acute kidney injury [Recovered/Resolved]
  - Staphylococcal sepsis [Recovered/Resolved]
  - Tenderness [Recovering/Resolving]
  - Pallor [Recovering/Resolving]
  - Renal impairment [Recovering/Resolving]
  - Skin turgor decreased [Recovering/Resolving]
  - Respiratory rate increased [Recovering/Resolving]
  - Condition aggravated [Recovering/Resolving]
  - Chromaturia [Recovering/Resolving]
  - Nerve compression [Recovering/Resolving]
  - Subcutaneous abscess [Recovering/Resolving]
  - Urinary retention [Recovering/Resolving]
  - Abdominal tenderness [Recovering/Resolving]
  - Back pain [Recovering/Resolving]
  - Emotional distress [Recovering/Resolving]
  - Dehydration [Recovering/Resolving]
  - Urinary hesitation [Recovering/Resolving]
  - Staphylococcal infection [Recovering/Resolving]
  - Asthenia [Recovering/Resolving]
  - Nausea [Recovering/Resolving]
  - Dry mouth [Recovering/Resolving]
  - Inflammation [Recovering/Resolving]
  - Pyrexia [Recovering/Resolving]
  - Drug interaction [Unknown]
